FAERS Safety Report 23343160 (Version 1)
Quarter: 2023Q4

REPORT INFORMATION
  Report Type: Spontaneous
  Country: CN (occurrence: CN)
  Receive Date: 20231227
  Receipt Date: 20231227
  Transmission Date: 20240110
  Serious: Yes (Hospitalization)
  Sender: FDA-Public Use
  Company Number: CN-Merck Healthcare KGaA-2023496090

PATIENT
  Age: 58 Year
  Sex: Male
  Weight: 62 kg

DRUGS (6)
  1. ERBITUX [Suspect]
     Active Substance: CETUXIMAB
     Indication: Gingival cancer
     Dosage: 700 G, UNK
     Route: 041
     Dates: start: 20231127, end: 20231127
  2. ERBITUX [Suspect]
     Active Substance: CETUXIMAB
     Dosage: 450 G, UNKNOWN
     Route: 041
     Dates: start: 20231204, end: 20231204
  3. CARBOPLATIN [Suspect]
     Active Substance: CARBOPLATIN
     Indication: Gingival cancer
     Dosage: 0.28 G, DAILY
     Route: 041
     Dates: start: 20231128, end: 20231128
  4. CARBOPLATIN [Suspect]
     Active Substance: CARBOPLATIN
     Dosage: 0.28 G, DAILY
     Route: 041
     Dates: start: 20231205, end: 20231205
  5. PACLITAXEL [Suspect]
     Active Substance: PACLITAXEL
     Indication: Gingival cancer
     Dosage: 180 G, DAILY
     Route: 041
     Dates: start: 20231128, end: 20231128
  6. PACLITAXEL [Suspect]
     Active Substance: PACLITAXEL
     Dosage: 180 MG, UNKNOWN
     Route: 042

REACTIONS (1)
  - Myelosuppression [Recovered/Resolved]

NARRATIVE: CASE EVENT DATE: 20231208
